FAERS Safety Report 9999162 (Version 1)
Quarter: 2014Q1

REPORT INFORMATION
  Report Type: Spontaneous
  Country: CA (occurrence: None)
  Receive Date: 20140311
  Receipt Date: 20140311
  Transmission Date: 20141002
  Serious: No
  Sender: FDA-Public Use
  Company Number: None

PATIENT
  Age: 37 Year
  Sex: Female
  Weight: 70 kg

DRUGS (3)
  1. INVANZ ERTEPENEM [Suspect]
     Indication: INFECTION
     Dosage: INTO A VEIN
  2. LANTUS [Suspect]
     Indication: DIABETES MELLITUS
     Dosage: GIVEN INTO/UNDER THE SKIN
  3. GLYBURIDE [Suspect]

REACTIONS (1)
  - Vision blurred [None]
